FAERS Safety Report 16982163 (Version 2)
Quarter: 2020Q1

REPORT INFORMATION
  Report Type: Report from Study
  Country: ES (occurrence: ES)
  Receive Date: 20191101
  Receipt Date: 20200116
  Transmission Date: 20200409
  Serious: Yes (Hospitalization)
  Sender: FDA-Public Use
  Company Number: ES-TEVA-2019-ES-1129905

PATIENT
  Age: 79 Year
  Sex: Female

DRUGS (8)
  1. METFORMINA 850 MG COMPRIMIDO [Concomitant]
     Dosage: 850 MG
     Route: 048
  2. CLOPIDOGREL [Suspect]
     Active Substance: CLOPIDOGREL BISULFATE
     Indication: CEREBROVASCULAR ACCIDENT
  3. LORAZEPAM 1 MG 50 COMPRIMIDOS [Concomitant]
     Active Substance: LORAZEPAM
     Dosage: 1 MG
     Route: 048
  4. PANTOPRAZOL 40 MG 28 COMPRIMIDOS [Concomitant]
     Dosage: 40 MG
     Route: 048
  5. CLOPIDOGREL [Suspect]
     Active Substance: CLOPIDOGREL BISULFATE
     Indication: CEREBROVASCULAR ACCIDENT
     Dosage: 75 MILLIGRAM DAILY; 0-1-0
     Route: 048
     Dates: start: 2011, end: 20180205
  6. NOBRITOL [Concomitant]
     Active Substance: AMITRIPTYLINE HYDROCHLORIDE\MEDAZEPAM
     Route: 048
  7. ATORVASTATINA 20 MG COMPRIMIDO [Concomitant]
     Active Substance: ATORVASTATIN
     Dosage: 20 MG
     Route: 048
  8. CITALOPRAM 20 MG COMPRIMIDO [Concomitant]
     Dosage: 20 MG
     Route: 048

REACTIONS (2)
  - Cerebral haematoma [Recovered/Resolved with Sequelae]
  - Anaemia [Recovering/Resolving]

NARRATIVE: CASE EVENT DATE: 20180205
